FAERS Safety Report 9866936 (Version 1)
Quarter: 2014Q1

REPORT INFORMATION
  Report Type: Spontaneous
  Country: US (occurrence: US)
  Receive Date: 20140204
  Receipt Date: 20140204
  Transmission Date: 20141002
  Serious: No
  Sender: FDA-Public Use
  Company Number: US-PFIZER INC-2014028773

PATIENT
  Age: 46 Year
  Sex: Female

DRUGS (1)
  1. JUNIOR STRENGTH ADVIL [Suspect]
     Dosage: HALF CHEWABLE TABLET, ONCE
     Dates: start: 20140127, end: 20140127

REACTIONS (1)
  - Dysgeusia [Unknown]
